FAERS Safety Report 5814198-1 (Version None)
Quarter: 2008Q3

REPORT INFORMATION
  Report Type: 
  Country: None (occurrence: None)
  Receive Date: 20080717
  Receipt Date: 20080709
  Transmission Date: 20090109
  Serious: Yes (Hospitalization)
  Sender: FDA-Public Use
  Company Number: JP-GILEAD-2008-0016604

PATIENT
  Sex: Male

DRUGS (10)
  1. TRUVADA [Suspect]
     Indication: HIV INFECTION
     Route: 048
     Dates: start: 20070718
  2. REYATAZ [Suspect]
     Indication: HIV INFECTION
     Route: 048
     Dates: start: 20070718
  3. NORVIR [Suspect]
     Indication: HIV INFECTION
     Route: 048
     Dates: start: 20070418
  4. FOSCAVIR [Suspect]
     Indication: CYTOMEGALOVIRUS ENTEROCOLITIS
     Route: 041
     Dates: start: 20070311, end: 20070331
  5. FOSCAVIR [Suspect]
     Indication: CYTOMEGALOVIRUS VIRAEMIA
     Route: 041
     Dates: start: 20070401, end: 20070507
  6. FOSCAVIR [Suspect]
     Route: 041
     Dates: start: 20070508, end: 20070610
  7. FOSCAVIR [Suspect]
     Route: 041
     Dates: start: 20070626, end: 20070710
  8. ZITHROMAX [Suspect]
     Indication: MYCOBACTERIUM AVIUM COMPLEX INFECTION
     Dates: start: 20070612
  9. ZITHROMAX [Suspect]
     Dates: start: 20070207, end: 20070530
  10. ITRIZOLE [Concomitant]
     Route: 048
     Dates: start: 20070612

REACTIONS (5)
  - GLAUCOMA [None]
  - HYPOKALAEMIA [None]
  - HYPONATRAEMIA [None]
  - RENAL IMPAIRMENT [None]
  - UVEITIS [None]
